FAERS Safety Report 10490294 (Version 1)
Quarter: 2014Q4

REPORT INFORMATION
  Report Type: Spontaneous
  Country: US (occurrence: US)
  Receive Date: 20141002
  Receipt Date: 20141002
  Transmission Date: 20150528
  Serious: No
  Sender: FDA-Public Use
  Company Number: US-BAYER-2014-144468

PATIENT
  Age: 47 Year
  Sex: Female

DRUGS (2)
  1. PARAGARD T380A [Suspect]
     Active Substance: COPPER
     Dosage: UNK UNK, CONT
     Route: 015
     Dates: start: 2007
  2. MIRENA [Suspect]
     Active Substance: LEVONORGESTREL
     Dosage: 20 MCG/24HR, CONT
     Route: 015
     Dates: start: 2007

REACTIONS (3)
  - Device breakage [Not Recovered/Not Resolved]
  - Abdominal pain [Not Recovered/Not Resolved]
  - Device misuse [Not Recovered/Not Resolved]

NARRATIVE: CASE EVENT DATE: 2012
